FAERS Safety Report 21238951 (Version 1)
Quarter: 2022Q3

REPORT INFORMATION
  Report Type: Spontaneous
  Country: US (occurrence: US)
  Receive Date: 20220822
  Receipt Date: 20220822
  Transmission Date: 20221027
  Serious: No
  Sender: FDA-Public Use
  Company Number: US-SA-SAC20220819000648

PATIENT
  Sex: Female

DRUGS (4)
  1. DUPIXENT [Suspect]
     Active Substance: DUPILUMAB
     Indication: Dermatitis atopic
     Dosage: 300 MG, QOW
     Route: 058
     Dates: start: 20210903
  2. CLOBETASOL [Concomitant]
     Active Substance: CLOBETASOL
  3. NALTREXONE [Concomitant]
     Active Substance: NALTREXONE
  4. SUMATRIPTAN [Concomitant]
     Active Substance: SUMATRIPTAN

REACTIONS (1)
  - Drug effect less than expected [Unknown]
